FAERS Safety Report 4682005-9 (Version None)
Quarter: 2005Q2

REPORT INFORMATION
  Report Type: 
  Country: None (occurrence: None)
  Receive Date: 20050606
  Receipt Date: 20050525
  Transmission Date: 20051028
  Serious: Yes (Hospitalization)
  Sender: FDA-Public Use
  Company Number: ES-JNJFOC-20050506621

PATIENT
  Sex: Male

DRUGS (6)
  1. REMICADE [Suspect]
     Route: 042
  2. ETANERCEPT [Suspect]
     Route: 065
  3. METHOTREXATE [Concomitant]
  4. PREDNISONE [Concomitant]
  5. DICLOFENAC [Concomitant]
  6. OMEPRAZOLE [Concomitant]

REACTIONS (1)
  - AMYOTROPHIC LATERAL SCLEROSIS [None]
